FAERS Safety Report 5232285-6 (Version None)
Quarter: 2007Q1

REPORT INFORMATION
  Report Type: 
  Country: None (occurrence: None)
  Receive Date: 20070207
  Receipt Date: 20070130
  Transmission Date: 20070707
  Serious: Yes (Other)
  Sender: FDA-Public Use
  Company Number: PHEH2004US07121

PATIENT
  Age: 61 Year
  Sex: Female

DRUGS (10)
  1. ZOMETA [Suspect]
     Indication: METASTASES TO BONE
     Dosage: 4 MG, QMO
     Route: 042
     Dates: start: 20011219, end: 20040525
  2. ARIMIDEX [Concomitant]
     Dosage: 1 MG, QD
     Route: 048
     Dates: start: 20000101
  3. AREDIA [Suspect]
     Indication: BREAST CANCER METASTATIC
     Dosage: 90MG QMO
     Dates: start: 20010313, end: 20011018
  4. XYLOCAINE [Concomitant]
  5. GLYBURIDE [Concomitant]
     Dosage: 5 MG, BID
  6. FLUOXETINE [Concomitant]
     Dosage: 20 MG, QD
  7. AMITRIPTYLINE HCL [Concomitant]
     Dosage: 75 MG, BID
  8. LISINOPRIL [Concomitant]
     Dosage: 10 MG, QD
  9. ASPIRIN [Concomitant]
     Dosage: 81 MG, QD
  10. PEPCID AC [Concomitant]
     Dosage: 10 MG, BID

REACTIONS (13)
  - ACTINOMYCOSIS [None]
  - DENTAL CARIES [None]
  - GINGIVITIS [None]
  - IMPAIRED HEALING [None]
  - OROANTRAL FISTULA [None]
  - OSTECTOMY [None]
  - OSTEOMYELITIS [None]
  - OSTEONECROSIS [None]
  - PAIN [None]
  - SINUSITIS [None]
  - TOOTH ABSCESS [None]
  - TOOTH EXTRACTION [None]
  - WOUND DEBRIDEMENT [None]
